FAERS Safety Report 16056589 (Version 1)
Quarter: 2019Q1

REPORT INFORMATION
  Report Type: Spontaneous
  Country: US (occurrence: US)
  Receive Date: 20190208
  Receipt Date: 20190208
  Transmission Date: 20190418
  Serious: No
  Sender: FDA-Public Use
  Company Number: None

PATIENT
  Sex: Male

DRUGS (1)
  1. COLGATE PHOS FLUR [Suspect]
     Active Substance: SODIUM FLUORIDE

REACTIONS (2)
  - Oral disorder [None]
  - Dyspepsia [None]
